FAERS Safety Report 19220339 (Version 4)
Quarter: 2023Q2

REPORT INFORMATION
  Report Type: Report from Study
  Country: AR (occurrence: AR)
  Receive Date: 20210505
  Receipt Date: 20230425
  Transmission Date: 20230721
  Serious: Yes (Other)
  Sender: FDA-Public Use
  Company Number: PHHY2018AR105659

PATIENT
  Age: 51 Year
  Sex: Female

DRUGS (5)
  1. COSENTYX [Suspect]
     Active Substance: SECUKINUMAB
     Indication: Psoriatic arthropathy
     Dosage: 300 MG, QW
     Route: 058
     Dates: start: 20180920
  2. COSENTYX [Suspect]
     Active Substance: SECUKINUMAB
     Dosage: 300 MG, QMO
     Route: 058
  3. LEVOTHYROXINE [Concomitant]
     Active Substance: LEVOTHYROXINE
     Indication: Thyroid disorder
     Dosage: 100 MG, UNK (A QUARTER A DAY)
     Route: 065
  4. RIVOTRIL [Concomitant]
     Active Substance: CLONAZEPAM
     Indication: Sleep disorder
     Dosage: UNK (A QUARTER IN THE NIGHT)
     Route: 065
  5. IBUPROFEN [Concomitant]
     Active Substance: IBUPROFEN
     Indication: Arthralgia
     Dosage: 600 MG, BID
     Route: 065

REACTIONS (12)
  - Venous perforation [Unknown]
  - Psoriatic arthropathy [Unknown]
  - Inflammation [Not Recovered/Not Resolved]
  - Skin plaque [Recovering/Resolving]
  - Arthralgia [Unknown]
  - Pyrexia [Unknown]
  - Emotional disorder [Unknown]
  - Injection site pain [Unknown]
  - Feeling abnormal [Not Recovered/Not Resolved]
  - Pain [Unknown]
  - Injection site haemorrhage [Unknown]
  - Product distribution issue [Unknown]

NARRATIVE: CASE EVENT DATE: 20180920
